FAERS Safety Report 8560532-1 (Version None)
Quarter: 2012Q3

REPORT INFORMATION
  Report Type: 
  Country: None (occurrence: None)
  Receive Date: 20120802
  Receipt Date: 20111112
  Transmission Date: 20120928
  Serious: Yes (Hospitalization, Other)
  Sender: FDA-Public Use
  Company Number: US-BAYER-200935705NA

PATIENT
  Age: 26 Year
  Sex: Female
  Weight: 109 kg

DRUGS (17)
  1. ALBUTEROL [Concomitant]
  2. DROSPIRENONE AND ETHINYL ESTRADIOL [Suspect]
     Indication: MENSTRUAL CYCLE MANAGEMENT
     Dosage: UNK UNK, UNK
     Route: 048
     Dates: start: 20060101, end: 20100101
  3. ZYRTEC [Concomitant]
  4. OTHER ANALGESICS AND ANTIPYRETICS [Concomitant]
  5. PHENOBARBITAL TAB [Concomitant]
     Dosage: NIGHT
     Route: 065
  6. PHENOBARBITAL TAB [Concomitant]
     Dosage: NIGHT
     Route: 065
  7. PAPAYA ENZYME [Concomitant]
  8. YASMIN [Suspect]
     Indication: CONVULSION
  9. YAZ [Suspect]
     Indication: MENSTRUAL CYCLE MANAGEMENT
     Route: 048
  10. IBUPROFEN [Concomitant]
  11. NEXIUM [Concomitant]
     Indication: GASTROOESOPHAGEAL REFLUX DISEASE
     Route: 065
  12. YASMIN [Suspect]
     Indication: MENSTRUAL CYCLE MANAGEMENT
     Dosage: UNK
     Route: 048
     Dates: start: 20060101, end: 20100101
  13. MECLIZINE [Concomitant]
  14. ASCORBIC ACID [Concomitant]
  15. PHENOBARBITAL TAB [Concomitant]
     Indication: CONVULSION
     Dosage: MORNING
     Route: 065
  16. VICODIN [Concomitant]
     Dosage: 5/500 MG
  17. EXCEDRIN (MIGRAINE) [Concomitant]

REACTIONS (7)
  - METAPLASIA [None]
  - ABDOMINAL PAIN UPPER [None]
  - ABDOMINAL PAIN [None]
  - CHOLECYSTITIS CHRONIC [None]
  - NAUSEA [None]
  - EPILEPSY [None]
  - GASTRITIS ATROPHIC [None]
